FAERS Safety Report 13649422 (Version 1)
Quarter: 2017Q2

REPORT INFORMATION
  Report Type: Spontaneous
  Country: US (occurrence: US)
  Receive Date: 20170613
  Receipt Date: 20170613
  Transmission Date: 20170830
  Serious: No
  Sender: FDA-Public Use
  Company Number: US-B.I. PHARMACEUTICALS,INC./RIDGEFIELD-2017-BI-032162

PATIENT
  Sex: Female

DRUGS (1)
  1. ZANTAC [Suspect]
     Active Substance: RANITIDINE HYDROCHLORIDE
     Indication: PRODUCT USED FOR UNKNOWN INDICATION
     Dosage: 1 ONCE DAILY;  ADMINISTRATION CORRECT? YES ACTION(S) TAKEN WITH PRODUCT: NOT REPORTED
     Route: 048

REACTIONS (6)
  - Hypertension [Unknown]
  - Gastric ulcer haemorrhage [Unknown]
  - Depressed mood [Unknown]
  - Malaise [Unknown]
  - Chest pain [Unknown]
  - Adverse drug reaction [Unknown]
